FAERS Safety Report 23296111 (Version 1)
Quarter: 2023Q4

REPORT INFORMATION
  Report Type: Spontaneous
  Country: US (occurrence: None)
  Receive Date: 20231213
  Receipt Date: 20231213
  Transmission Date: 20240110
  Serious: No
  Sender: FDA-Public Use
  Company Number: None

PATIENT
  Sex: Female

DRUGS (1)
  1. VERZENIO [Suspect]
     Active Substance: ABEMACICLIB
     Dosage: FREQUENCY : TWICE A DAY;?
     Route: 048
     Dates: start: 202311, end: 20231212

REACTIONS (7)
  - Heart rate increased [None]
  - Refusal of treatment by patient [None]
  - Somnolence [None]
  - Full blood count decreased [None]
  - Product use issue [None]
  - Wrong technique in product usage process [None]
  - Therapy interrupted [None]
